FAERS Safety Report 6767774-6 (Version None)
Quarter: 2010Q2

REPORT INFORMATION
  Report Type: 
  Country: None (occurrence: None)
  Receive Date: 20100614
  Receipt Date: 20100604
  Transmission Date: 20101027
  Serious: Yes (Other)
  Sender: FDA-Public Use
  Company Number: DE-ROCHE-708331

PATIENT
  Sex: Female
  Weight: 76 kg

DRUGS (9)
  1. HERCEPTIN [Suspect]
     Dosage: INITIAL DOSAGE
     Route: 042
     Dates: start: 20091117, end: 20091117
  2. HERCEPTIN [Suspect]
     Dosage: AT LEAST 5 CYCLES COMPLETED ALREADY
     Route: 042
     Dates: start: 20091124
  3. TAXOTERE [Suspect]
     Dosage: TOTAL OF 5 CYCLES
     Route: 042
     Dates: start: 20091116, end: 20100208
  4. CARBOPLATIN [Suspect]
     Dosage: TOTAL OF 5 CYCLES
     Route: 042
     Dates: start: 20091116, end: 20100208
  5. CIPROFLOXACIN [Suspect]
     Indication: INFECTION
     Route: 048
     Dates: start: 20091129, end: 20100112
  6. DEXA [Concomitant]
     Dates: start: 20091116
  7. TAVEGIL [Concomitant]
     Dosage: 1 AMPULE
     Dates: start: 20091116
  8. RANITIDINE HCL [Concomitant]
     Dosage: 1 AMPULE
     Dates: start: 20091116
  9. ONDANSETRON [Concomitant]
     Dates: start: 20091116

REACTIONS (4)
  - FEBRILE INFECTION [None]
  - LEUKOPENIA [None]
  - MUSCULOSKELETAL PAIN [None]
  - PSORIASIS [None]
